FAERS Safety Report 10785881 (Version 1)
Quarter: 2015Q1

REPORT INFORMATION
  Report Type: Spontaneous
  Country: US (occurrence: None)
  Receive Date: 20150210
  Receipt Date: 20150210
  Transmission Date: 20150721
  Serious: No
  Sender: FDA-Public Use
  Company Number: None

PATIENT
  Age: 3 Year
  Sex: Male
  Weight: 13.61 kg

DRUGS (3)
  1. TAMIFLU [Suspect]
     Active Substance: OSELTAMIVIR PHOSPHATE
     Indication: INFLUENZA
     Dosage: 1 TEASPOON TWICE DAILY
     Route: 048
     Dates: start: 20150207, end: 20150209
  2. ALBUTEROL FLOVENT [Concomitant]
  3. ELDERBERRY SYRUP [Concomitant]

REACTIONS (5)
  - Speech disorder [None]
  - Abnormal behaviour [None]
  - Fear [None]
  - Middle insomnia [None]
  - Crying [None]

NARRATIVE: CASE EVENT DATE: 20150208
